FAERS Safety Report 20834991 (Version 2)
Quarter: 2022Q3

REPORT INFORMATION
  Report Type: Report from Study
  Country: US (occurrence: US)
  Receive Date: 20220516
  Receipt Date: 20220708
  Transmission Date: 20221027
  Serious: Yes (Hospitalization, Other)
  Sender: FDA-Public Use
  Company Number: US-BAYER-2022A059011

PATIENT
  Age: 59 Year
  Sex: Female
  Weight: 73.923 kg

DRUGS (3)
  1. ADEMPAS [Suspect]
     Active Substance: RIOCIGUAT
     Indication: Pulmonary arterial hypertension
     Dosage: UNK
     Route: 048
     Dates: start: 20220118
  2. ADEMPAS [Suspect]
     Active Substance: RIOCIGUAT
     Indication: Pulmonary arterial hypertension
     Dosage: 2.5 MG, TID
     Route: 048
  3. ADEMPAS [Suspect]
     Active Substance: RIOCIGUAT
     Indication: Pulmonary arterial hypertension
     Dosage: 2.5 MG, TID
     Route: 048

REACTIONS (22)
  - Hepatic neoplasm [None]
  - Hepatic vascular thrombosis [None]
  - Abdominal pain upper [None]
  - Abdominal pain upper [None]
  - Haemorrhage [None]
  - Gastric ulcer [None]
  - Portal vein thrombosis [None]
  - Fall [None]
  - Diarrhoea [None]
  - Abdominal pain [None]
  - Dizziness [None]
  - Balance disorder [None]
  - Epistaxis [None]
  - Tongue discomfort [None]
  - Hypotension [None]
  - Abdominal pain upper [None]
  - Diarrhoea [None]
  - Nausea [None]
  - Cholelithiasis [None]
  - Anaemia [None]
  - Hernia [None]
  - Weight decreased [None]
